FAERS Safety Report 19517385 (Version 30)
Quarter: 2022Q4

REPORT INFORMATION
  Report Type: Report from Study
  Country: CA (occurrence: CA)
  Receive Date: 20210712
  Receipt Date: 20221110
  Transmission Date: 20230113
  Serious: Yes (Other)
  Sender: FDA-Public Use
  Company Number: CA-AMGEN-CANSL2021071901

PATIENT
  Age: 69 Year
  Sex: Male
  Weight: 91.5 kg

DRUGS (29)
  1. KYPROLIS [Suspect]
     Active Substance: CARFILZOMIB
     Indication: Plasma cell myeloma refractory
     Dosage: UNK
     Route: 065
     Dates: start: 20201119
  2. KYPROLIS [Suspect]
     Active Substance: CARFILZOMIB
     Dosage: 120 MILLIGRAM (CYCLE 7 DAY 1) DAY 1,2,8,9,15,16
     Route: 042
     Dates: start: 20210506
  3. KYPROLIS [Suspect]
     Active Substance: CARFILZOMIB
     Dosage: 120 MILLIGRAM  DAY 1, 8 AND 15
     Route: 065
  4. KYPROLIS [Suspect]
     Active Substance: CARFILZOMIB
     Dosage: 120 MILLIGRAM CYCLE 9 -DAY 1
     Route: 042
     Dates: start: 20210702
  5. KYPROLIS [Suspect]
     Active Substance: CARFILZOMIB
     Dosage: 120 MILLIGRAM, CYCLE 9
     Route: 042
     Dates: start: 20210715
  6. KYPROLIS [Suspect]
     Active Substance: CARFILZOMIB
     Dosage: 120 MILLIGRAM CYCLE 10
     Route: 042
     Dates: start: 20210730
  7. KYPROLIS [Suspect]
     Active Substance: CARFILZOMIB
     Dosage: 120 MILLIGRAM, Q2WK
     Route: 042
     Dates: start: 20210812
  8. KYPROLIS [Suspect]
     Active Substance: CARFILZOMIB
     Dosage: 120 MILLIGRAM, Q2WK, DAY 1 + DAY 15 (Q2W)
     Route: 042
     Dates: start: 20210826
  9. KYPROLIS [Suspect]
     Active Substance: CARFILZOMIB
     Dosage: 120 MILLIGRAM, Q2WK,
     Route: 042
     Dates: start: 20210909
  10. KYPROLIS [Suspect]
     Active Substance: CARFILZOMIB
     Dosage: 120 MILLIGRAM, Q2WK
     Route: 042
     Dates: start: 20210923
  11. KYPROLIS [Suspect]
     Active Substance: CARFILZOMIB
     Dosage: 120 MILLIGRAM, Q2WK
     Route: 042
     Dates: start: 20211007
  12. KYPROLIS [Suspect]
     Active Substance: CARFILZOMIB
     Dosage: 120 MILLIGRAM, Q2WK
     Route: 065
     Dates: start: 20211112
  13. KYPROLIS [Suspect]
     Active Substance: CARFILZOMIB
     Dosage: 120 MILLIGRAM, Q2WK
     Route: 042
     Dates: start: 20211209
  14. KYPROLIS [Suspect]
     Active Substance: CARFILZOMIB
     Dosage: 120 MILLIGRAM
     Route: 042
     Dates: start: 20211223
  15. KYPROLIS [Suspect]
     Active Substance: CARFILZOMIB
     Dosage: 120 MILLIGRAM
     Route: 042
     Dates: start: 20220113
  16. KYPROLIS [Suspect]
     Active Substance: CARFILZOMIB
     Dosage: 120 MILLIGRAM, Q2WK
     Route: 042
     Dates: start: 20220210
  17. KYPROLIS [Suspect]
     Active Substance: CARFILZOMIB
     Dosage: 120 MILLIGRAM, Q2WK (DAY 1 AND DAY 15)
     Route: 042
     Dates: start: 20220224
  18. KYPROLIS [Suspect]
     Active Substance: CARFILZOMIB
     Dosage: 120 MILLIGRAM, Q2WK
     Route: 042
     Dates: start: 20220414
  19. KYPROLIS [Suspect]
     Active Substance: CARFILZOMIB
     Dosage: 58 MILLIGRAM, Q2WK (DAY 15)
     Route: 042
     Dates: start: 202204
  20. KYPROLIS [Suspect]
     Active Substance: CARFILZOMIB
     Dosage: 58 MILLIGRAM, Q2WK
     Route: 042
     Dates: start: 20220526
  21. KYPROLIS [Suspect]
     Active Substance: CARFILZOMIB
     Dosage: 58 MILLIGRAM, Q2WK
     Route: 042
     Dates: start: 20220609
  22. KYPROLIS [Suspect]
     Active Substance: CARFILZOMIB
     Dosage: 58MG/ DAY 1, 8, 15
     Route: 065
     Dates: start: 20220707
  23. KYPROLIS [Suspect]
     Active Substance: CARFILZOMIB
     Dosage: 58 MILLIGRAM DAY 1, 15
     Route: 065
     Dates: start: 20220825
  24. KYPROLIS [Suspect]
     Active Substance: CARFILZOMIB
     Dosage: 58 MILLIGRAM DAY 1, 15
     Route: 042
     Dates: start: 20220908
  25. KYPROLIS [Suspect]
     Active Substance: CARFILZOMIB
     Dosage: 58 MILLIGRAM DAY 1, 15
     Route: 042
     Dates: start: 20220922
  26. KYPROLIS [Suspect]
     Active Substance: CARFILZOMIB
     Dosage: 58 MILLIGRAM DAY 1, 15
     Route: 042
     Dates: start: 20221020
  27. KYPROLIS [Suspect]
     Active Substance: CARFILZOMIB
     Dosage: 58 MILLIGRAM DAY 1, 15
     Route: 042
     Dates: start: 20221103
  28. DEXAMETHASONE [Concomitant]
     Active Substance: DEXAMETHASONE
     Indication: Product used for unknown indication
     Dosage: 40 MILLIGRAM
     Route: 048
     Dates: start: 20210714
  29. LENALIDOMIDE [Concomitant]
     Active Substance: LENALIDOMIDE
     Indication: Product used for unknown indication
     Dosage: UNK
     Route: 048

REACTIONS (17)
  - Bradycardia [Unknown]
  - Hypersensitivity [Unknown]
  - Salmonellosis [Recovered/Resolved]
  - Somnolence [Not Recovered/Not Resolved]
  - Disturbance in attention [Unknown]
  - Sleep disorder [Unknown]
  - Decreased appetite [Recovered/Resolved]
  - Malaise [Not Recovered/Not Resolved]
  - Dyspnoea [Not Recovered/Not Resolved]
  - Fatigue [Not Recovered/Not Resolved]
  - Arthralgia [Unknown]
  - Rash [Recovering/Resolving]
  - Tooth extraction [Unknown]
  - Off label use [Unknown]
  - SARS-CoV-2 test positive [Unknown]
  - Weight abnormal [Unknown]
  - Anxiety [Recovered/Resolved]

NARRATIVE: CASE EVENT DATE: 20210506
